FAERS Safety Report 20530095 (Version 1)
Quarter: 2022Q1

REPORT INFORMATION
  Report Type: Spontaneous
  Country: US (occurrence: US)
  Receive Date: 20220301
  Receipt Date: 20220301
  Transmission Date: 20220424
  Serious: No
  Sender: FDA-Public Use
  Company Number: US-TEVA-2022-US-2010723

PATIENT
  Age: 57 Year
  Sex: Female

DRUGS (2)
  1. CONSTULOSE [Suspect]
     Active Substance: LACTULOSE
     Indication: Constipation
     Dosage: 30 ML IN THE MORNING AND 30 ML BEFORE BEDTIME, 10/15 G/ML
     Route: 065
     Dates: start: 20220111
  2. INSULIN NOS [Concomitant]
     Active Substance: INSULIN NOS

REACTIONS (1)
  - Blood glucose increased [Unknown]
